FAERS Safety Report 7471886-1 (Version None)
Quarter: 2011Q2

REPORT INFORMATION
  Report Type: 
  Country: None (occurrence: None)
  Receive Date: 20110511
  Receipt Date: 20100616
  Transmission Date: 20111010
  Serious: No
  Sender: FDA-Public Use
  Company Number: A0867718A

PATIENT
  Sex: Female

DRUGS (2)
  1. TYKERB [Suspect]
     Indication: BREAST CANCER
     Dosage: 1250MGD PER DAY
     Route: 048
     Dates: start: 20100603
  2. XELODA [Suspect]
     Route: 065
     Dates: start: 20100604

REACTIONS (3)
  - DIARRHOEA [None]
  - NAUSEA [None]
  - DYSPNOEA [None]
